FAERS Safety Report 9732822 (Version 2)
Quarter: 2014Q2

REPORT INFORMATION
  Report Type: Spontaneous
  Country: US (occurrence: US)
  Receive Date: 20131205
  Receipt Date: 20140512
  Transmission Date: 20141212
  Serious: Yes (Hospitalization, Disabling, Other)
  Sender: FDA-Public Use
  Company Number: US-009507513-1312USA001814

PATIENT
  Sex: Female

DRUGS (4)
  1. FOSAMAX [Suspect]
     Indication: OSTEOPOROSIS PROPHYLAXIS
     Dosage: UNK
     Route: 048
     Dates: start: 2006, end: 200802
  2. FOSAMAX [Suspect]
     Indication: OSTEOPOROSIS
  3. ALENDRONATE SODIUM [Suspect]
     Indication: OSTEOPOROSIS PROPHYLAXIS
     Dosage: 70 MG, UNK
     Route: 048
     Dates: start: 200802, end: 2012
  4. ALENDRONATE SODIUM [Suspect]
     Indication: OSTEOPOROSIS

REACTIONS (35)
  - Femur fracture [Not Recovered/Not Resolved]
  - Hip arthroplasty [Unknown]
  - Acetabulum fracture [Not Recovered/Not Resolved]
  - Road traffic accident [Unknown]
  - Hypoxia [Unknown]
  - Tachycardia [Unknown]
  - Joint dislocation [Unknown]
  - Osteoporosis [Not Recovered/Not Resolved]
  - Low turnover osteopathy [Not Recovered/Not Resolved]
  - Medical device removal [Unknown]
  - Medical device complication [Unknown]
  - Traction [Unknown]
  - Laceration [Unknown]
  - Cholecystectomy [Unknown]
  - Contusion [Unknown]
  - Hip fracture [Not Recovered/Not Resolved]
  - Head injury [Unknown]
  - Surgical failure [Unknown]
  - Osteopenia [Unknown]
  - Tenderness [Unknown]
  - Radiotherapy [Unknown]
  - Cognitive disorder [Unknown]
  - Abnormal behaviour [Unknown]
  - Osteogenesis imperfecta [Unknown]
  - Anxiety disorder [Unknown]
  - Depression [Unknown]
  - Hypothyroidism [Unknown]
  - Sleep apnoea syndrome [Unknown]
  - Osteoarthritis [Unknown]
  - Cystitis [Unknown]
  - Occipital neuralgia [Unknown]
  - Rib fracture [Recovering/Resolving]
  - Appendicectomy [Unknown]
  - Knee operation [Unknown]
  - Fallopian tube operation [Unknown]
